FAERS Safety Report 8241315-9 (Version None)
Quarter: 2012Q1

REPORT INFORMATION
  Report Type: 
  Country: None (occurrence: None)
  Receive Date: 20120328
  Receipt Date: 20120323
  Transmission Date: 20120608
  Serious: No
  Sender: FDA-Public Use
  Company Number: JP-PFIZER INC-2012068942

PATIENT
  Age: 90 Year
  Sex: Female

DRUGS (5)
  1. DOXAZOSIN MESYLATE [Concomitant]
     Dosage: UNK
     Route: 048
  2. LIPITOR [Concomitant]
     Dosage: UNK
     Route: 048
  3. NORVASC [Concomitant]
     Dosage: UNK
     Route: 048
  4. CANDESARTAN CILEXETIL [Concomitant]
     Dosage: UNK
     Route: 048
  5. EPLERENONE [Suspect]
     Indication: HYPERTENSION
     Dosage: 50 MG, 1X/DAY
     Route: 048

REACTIONS (2)
  - URINE OUTPUT INCREASED [None]
  - URINE SODIUM INCREASED [None]
